FAERS Safety Report 14938560 (Version 7)
Quarter: 2019Q2

REPORT INFORMATION
  Report Type: Report from Study
  Country: US (occurrence: US)
  Receive Date: 20180525
  Receipt Date: 20190416
  Transmission Date: 20190711
  Serious: Yes (Life-Threatening, Hospitalization)
  Sender: FDA-Public Use
  Company Number: US-EISAI MEDICAL RESEARCH-EC-2018-038169

PATIENT
  Age: 73 Year
  Sex: Male
  Weight: 76.8 kg

DRUGS (31)
  1. PANTOPRAZOLE [Concomitant]
     Active Substance: PANTOPRAZOLE
  2. PERCOCET [Concomitant]
     Active Substance: ACETAMINOPHEN\OXYCODONE HYDROCHLORIDE
  3. ACETAMINOPHEN. [Concomitant]
     Active Substance: ACETAMINOPHEN
  4. COMPAZINE [Concomitant]
     Active Substance: PROCHLORPERAZINE MALEATE
  5. PEMBROLIZUMAB. [Suspect]
     Active Substance: PEMBROLIZUMAB
     Indication: CLEAR CELL RENAL CELL CARCINOMA
     Route: 041
     Dates: start: 20180122, end: 20190128
  6. LANTUS [Concomitant]
     Active Substance: INSULIN GLARGINE
  7. HYDRALAZINE [Concomitant]
     Active Substance: HYDRALAZINE HYDROCHLORIDE
  8. NORMAL SALINE [Concomitant]
     Active Substance: SODIUM CHLORIDE
  9. HYDROCORTISONE. [Concomitant]
     Active Substance: HYDROCORTISONE
  10. ZOFRAN [Concomitant]
     Active Substance: ONDANSETRON HYDROCHLORIDE
  11. LENVATINIB [Suspect]
     Active Substance: LENVATINIB
     Route: 048
     Dates: start: 20180304, end: 20190128
  12. CLONIDINE. [Concomitant]
     Active Substance: CLONIDINE
  13. AMLODIPINE [Concomitant]
     Active Substance: AMLODIPINE BESYLATE
  14. SITAGLIPTIN [Concomitant]
     Active Substance: SITAGLIPTIN
  15. KEFLEX [Concomitant]
     Active Substance: CEPHALEXIN
  16. JANUVIA [Concomitant]
     Active Substance: SITAGLIPTIN PHOSPHATE
  17. TYLENOL [Concomitant]
     Active Substance: ACETAMINOPHEN
  18. MEDROL [Concomitant]
     Active Substance: METHYLPREDNISOLONE
  19. PREDNISONE. [Concomitant]
     Active Substance: PREDNISONE
  20. FIORICET [Concomitant]
     Active Substance: ACETAMINOPHEN\BUTALBITAL\CAFFEINE
  21. HYDROCODONE/ACETAMINOPHEN [Concomitant]
     Active Substance: ACETAMINOPHEN\HYDROCODONE
  22. PANTOPRAZOLE [Concomitant]
     Active Substance: PANTOPRAZOLE
  23. LENVATINIB [Suspect]
     Active Substance: LENVATINIB
     Indication: CLEAR CELL RENAL CELL CARCINOMA
     Route: 048
     Dates: start: 20180122, end: 20180303
  24. VITAMIN B12 [Concomitant]
     Active Substance: CYANOCOBALAMIN
  25. IBUPROFEN. [Concomitant]
     Active Substance: IBUPROFEN
  26. JANUVIA [Concomitant]
     Active Substance: SITAGLIPTIN PHOSPHATE
  27. AMOXICILLIN. [Concomitant]
     Active Substance: AMOXICILLIN
  28. OXYCODONE [Concomitant]
     Active Substance: OXYCODONE
  29. PRAVASTATIN. [Concomitant]
     Active Substance: PRAVASTATIN
  30. LISINOPRIL. [Concomitant]
     Active Substance: LISINOPRIL
  31. INSULIN GLARGINE [Concomitant]
     Active Substance: INSULIN GLARGINE

REACTIONS (10)
  - Hypoglycaemia [Recovered/Resolved]
  - Back pain [Recovered/Resolved]
  - Hypertension [Recovered/Resolved]
  - Eosinophilia myalgia syndrome [Recovered/Resolved]
  - Dyspnoea [Recovered/Resolved]
  - Mental status changes [Recovered/Resolved]
  - Asthenia [Recovered/Resolved]
  - Dizziness [Recovered/Resolved]
  - Non-cardiac chest pain [Recovered/Resolved]
  - Syncope [Recovered/Resolved]

NARRATIVE: CASE EVENT DATE: 20180415
